FAERS Safety Report 10306395 (Version 1)
Quarter: 2014Q3

REPORT INFORMATION
  Report Type: Spontaneous
  Country: IT (occurrence: IT)
  Receive Date: 20140715
  Receipt Date: 20140715
  Transmission Date: 20150326
  Serious: Yes (Other)
  Sender: FDA-Public Use
  Company Number: IT-ACTAVIS-2014-15233

PATIENT
  Age: 67 Year
  Sex: Male

DRUGS (1)
  1. OXALIPLATIN (UNKNOWN) [Suspect]
     Active Substance: OXALIPLATIN
     Indication: ADENOCARCINOMA OF COLON
     Dosage: 110 MG, CYCLICAL
     Route: 042
     Dates: start: 20140404

REACTIONS (4)
  - Hyperhidrosis [Unknown]
  - Flushing [Unknown]
  - Idiosyncratic drug reaction [Unknown]
  - Feeling hot [Unknown]

NARRATIVE: CASE EVENT DATE: 20140428
